FAERS Safety Report 10619653 (Version 2)
Quarter: 2014Q4

REPORT INFORMATION
  Report Type: Spontaneous
  Country: JP (occurrence: JP)
  Receive Date: 20141202
  Receipt Date: 20141202
  Transmission Date: 20150529
  Serious: Yes (Hospitalization)
  Sender: FDA-Public Use
  Company Number: JP-ELI_LILLY_AND_COMPANY-JP201411005801

PATIENT
  Age: 66 Year
  Sex: Female

DRUGS (3)
  1. CYMBALTA [Suspect]
     Active Substance: DULOXETINE HYDROCHLORIDE
     Indication: DEPRESSION
     Dosage: 20 MG, QD
     Route: 048
     Dates: start: 20141015, end: 20141020
  2. ABILIFY [Suspect]
     Active Substance: ARIPIPRAZOLE
     Indication: BIPOLAR DISORDER
     Dosage: UNK
     Route: 048
     Dates: end: 20141020
  3. LIMAS [Suspect]
     Active Substance: LITHIUM CARBONATE
     Indication: BIPOLAR DISORDER
     Dosage: UNK
     Route: 048
     Dates: end: 20141020

REACTIONS (3)
  - Pyrexia [Recovered/Resolved]
  - Neuroleptic malignant syndrome [Recovered/Resolved]
  - Blood creatine phosphokinase increased [Recovered/Resolved]

NARRATIVE: CASE EVENT DATE: 20141019
